FAERS Safety Report 16053438 (Version 1)
Quarter: 2019Q1

REPORT INFORMATION
  Report Type: Report from Study
  Country: US (occurrence: US)
  Receive Date: 20190308
  Receipt Date: 20190308
  Transmission Date: 20190418
  Serious: Yes (Other)
  Sender: FDA-Public Use
  Company Number: US-NOVOPROD-649558

PATIENT
  Age: 54 Year
  Sex: Female
  Weight: 112.47 kg

DRUGS (2)
  1. OZEMPIC [Suspect]
     Active Substance: SEMAGLUTIDE
     Dosage: 1 MG, QW
     Route: 058
  2. OZEMPIC [Suspect]
     Active Substance: SEMAGLUTIDE
     Indication: DIABETES MELLITUS
     Dosage: WEEKLY
     Route: 058
     Dates: start: 20180624

REACTIONS (5)
  - Ear infection [Unknown]
  - Weight decreased [Unknown]
  - Deafness [Unknown]
  - Glycosylated haemoglobin decreased [Recovering/Resolving]
  - Nausea [Unknown]
